FAERS Safety Report 7513368-4 (Version None)
Quarter: 2011Q2

REPORT INFORMATION
  Report Type: 
  Country: None (occurrence: None)
  Receive Date: 20110531
  Receipt Date: 20110520
  Transmission Date: 20111010
  Serious: Yes (Other)
  Sender: FDA-Public Use
  Company Number: CA-JNJFOC-20110510181

PATIENT
  Sex: Female

DRUGS (7)
  1. SIMPONI [Suspect]
     Indication: RHEUMATOID ARTHRITIS
     Route: 058
     Dates: start: 20100407, end: 20110510
  2. AMITRIPTYLINE HCL [Concomitant]
  3. PREMARIN [Concomitant]
  4. FOLIC ACID [Concomitant]
     Dosage: 5MG 5 TO 7 DAYS
  5. PANTOPRAZOLE [Concomitant]
  6. PLAQUENIL [Concomitant]
  7. METHOTREXATE [Concomitant]
     Route: 048

REACTIONS (1)
  - THYROID NEOPLASM [None]
